FAERS Safety Report 13103898 (Version 1)
Quarter: 2017Q1

REPORT INFORMATION
  Report Type: Spontaneous
  Country: JP (occurrence: JP)
  Receive Date: 20170111
  Receipt Date: 20170111
  Transmission Date: 20170428
  Serious: Yes (Hospitalization)
  Sender: FDA-Public Use
  Company Number: JP-CLINIGEN GROUP PLC/ CLINIGEN HEALTHCARE LTD-E2B_00005866

PATIENT
  Age: 10 Month
  Sex: Male

DRUGS (3)
  1. FOSCAVIR [Suspect]
     Active Substance: FOSCARNET SODIUM
     Indication: PRODUCT USED FOR UNKNOWN INDICATION
     Route: 041
     Dates: start: 20100420, end: 20100715
  2. NEUTROGIN [Concomitant]
     Active Substance: LENOGRASTIM
     Route: 058
     Dates: start: 20091222, end: 20100826
  3. ESPO SUBCUTANEOUS INJECTION [Concomitant]
     Route: 058
     Dates: start: 20091230, end: 20100903

REACTIONS (1)
  - Hypercalcaemia [Recovered/Resolved]

NARRATIVE: CASE EVENT DATE: 20100713
